FAERS Safety Report 8335416-4 (Version None)
Quarter: 2012Q2

REPORT INFORMATION
  Report Type: 
  Country: None (occurrence: None)
  Receive Date: 20120503
  Receipt Date: 20120426
  Transmission Date: 20120825
  Serious: Yes (Other)
  Sender: FDA-Public Use
  Company Number: US-RB-037216-12

PATIENT
  Sex: Male

DRUGS (2)
  1. SUBOXONE [Suspect]
     Indication: DRUG DEPENDENCE
     Dosage: 16 MG, TAPERED TO 4 OR 6 MG DAILY
     Route: 064
     Dates: start: 20110525, end: 20120207
  2. SUBOXONE [Suspect]
     Indication: DRUG DEPENDENCE
     Dosage: 4-6 MG DAILY
     Route: 063
     Dates: start: 20120222

REACTIONS (9)
  - HEAD TITUBATION [None]
  - NEONATAL DISORDER [None]
  - GASTROOESOPHAGEAL REFLUX DISEASE [None]
  - NEONATAL RESPIRATORY DISTRESS SYNDROME [None]
  - EXPOSURE DURING BREAST FEEDING [None]
  - FOETAL EXPOSURE DURING PREGNANCY [None]
  - IRRITABILITY [None]
  - RESPIRATORY RATE INCREASED [None]
  - OXYGEN SATURATION DECREASED [None]
